FAERS Safety Report 8873644 (Version 1)
Quarter: 2012Q4

REPORT INFORMATION
  Report Type: 
  Country: GB (occurrence: GB)
  Receive Date: 20121030
  Receipt Date: 20121030
  Transmission Date: 20130627
  Serious: Yes (Other)
  Sender: FDA-Public Use
  Company Number: PHHY2012GB094362

PATIENT
  Age: 49 Year
  Sex: Female
  Weight: 85 kg

DRUGS (6)
  1. BISOPROLOL [Suspect]
     Dates: start: 20120911
  2. AMLODIPINE [Concomitant]
     Dates: start: 20120613, end: 20120711
  3. BENDROFLUMETHIAZIDE [Concomitant]
     Dates: start: 20120713
  4. CLOBETASONE BUTYRATE [Concomitant]
     Dates: start: 20120809, end: 20120906
  5. RAMIPRIL [Concomitant]
     Dates: start: 20120809, end: 20120906
  6. ATENOLOL [Concomitant]
     Dates: start: 20121010

REACTIONS (1)
  - Nightmare [Recovered/Resolved]
